FAERS Safety Report 12522087 (Version 1)
Quarter: 2016Q3

REPORT INFORMATION
  Report Type: Spontaneous
  Country: HU (occurrence: HU)
  Receive Date: 20160701
  Receipt Date: 20160701
  Transmission Date: 20161109
  Serious: Yes (Other)
  Sender: FDA-Public Use
  Company Number: HU-BAYER-2016-128110

PATIENT
  Age: 67 Year

DRUGS (2)
  1. ASPIRIN PROTECT [Suspect]
     Active Substance: ASPIRIN
     Indication: MANTLE CELL LYMPHOMA
     Dosage: 100 MG, QD
  2. IBRUTINIB [Interacting]
     Active Substance: IBRUTINIB
     Indication: MANTLE CELL LYMPHOMA

REACTIONS (3)
  - Drug interaction [None]
  - Von Willebrand^s disease [Recovered/Resolved]
  - Extravasation blood [Recovered/Resolved]
